FAERS Safety Report 24387187 (Version 1)
Quarter: 2024Q4

REPORT INFORMATION
  Report Type: Spontaneous
  Country: US (occurrence: US)
  Receive Date: 20241002
  Receipt Date: 20241002
  Transmission Date: 20250114
  Serious: No
  Sender: QOL
  Company Number: US-QOL Medical, LLC-2162352

PATIENT
  Age: 77 Year
  Sex: Female
  Weight: 63.636 kg

DRUGS (11)
  1. SUCRAID [Suspect]
     Active Substance: SACROSIDASE
     Dates: start: 20240104, end: 20240209
  2. AMLODIPINE [Concomitant]
     Active Substance: AMLODIPINE BESYLATE
  3. ZYRTEC [Concomitant]
     Active Substance: CETIRIZINE HYDROCHLORIDE
  4. PEPCID [Concomitant]
     Active Substance: FAMOTIDINE
  5. NORTRIPTYLINE [Concomitant]
     Active Substance: NORTRIPTYLINE
  6. SEREVENT DISKUS [Concomitant]
     Active Substance: SALMETEROL XINAFOATE
  7. RESTASIS [Concomitant]
     Active Substance: CYCLOSPORINE
  8. PROAIR HFA [Concomitant]
     Active Substance: ALBUTEROL SULFATE
  9. LATANOPROST [Concomitant]
     Active Substance: LATANOPROST
  10. HYOSCYAMINE [Concomitant]
     Active Substance: HYOSCYAMINE
  11. COLESTIPOL [Concomitant]
     Active Substance: COLESTIPOL

REACTIONS (1)
  - Fungal infection [Recovering/Resolving]

NARRATIVE: CASE EVENT DATE: 20240106
